FAERS Safety Report 20412556 (Version 1)
Quarter: 2022Q1

REPORT INFORMATION
  Report Type: Spontaneous
  Country: NL (occurrence: NL)
  Receive Date: 20220201
  Receipt Date: 20220201
  Transmission Date: 20220423
  Serious: Yes (Hospitalization)
  Sender: FDA-Public Use
  Company Number: NL-ROCHE-2997406

PATIENT
  Age: 75 Year
  Sex: Male

DRUGS (4)
  1. BEVACIZUMAB [Suspect]
     Active Substance: BEVACIZUMAB
     Indication: Lung neoplasm malignant
     Dosage: 9840 MG, CYCLIC (CUMULATIVE DOSE 9840 MG NUMBER OF CYCLE 8 )
     Route: 042
     Dates: start: 20210520, end: 20211118
  2. PACLITAXEL [Suspect]
     Active Substance: PACLITAXEL
     Indication: Lung neoplasm malignant
     Dosage: 1320.6 MG, CYCLIC (NUMBER OF CYCLE 4 CUMULATIVE DOSE OF 1320.6 MG )
     Route: 042
     Dates: start: 20210520, end: 20210826
  3. CARBOPLATIN [Suspect]
     Active Substance: CARBOPLATIN
     Indication: Lung neoplasm malignant
     Dosage: 2252.8 MG, CYCLIC (NUMBER OF CYCLE 4 CUMULATIVE DOSE OF 2252.8 MG)
     Route: 042
     Dates: start: 20210520, end: 20210826
  4. ATEZOLIZUMAB [Suspect]
     Active Substance: ATEZOLIZUMAB
     Indication: Lung neoplasm malignant
     Dosage: 8400 MG, CYCLIC (NUMBER OF CYCLE 7 CUMULATIVE DOSE 8400 MG)
     Route: 041
     Dates: start: 20210520

REACTIONS (2)
  - Coronary artery disease [Recovered/Resolved with Sequelae]
  - Hydronephrosis [Not Recovered/Not Resolved]

NARRATIVE: CASE EVENT DATE: 20211214
